FAERS Safety Report 24362560 (Version 2)
Quarter: 2024Q4

REPORT INFORMATION
  Report Type: Spontaneous
  Country: US (occurrence: US)
  Receive Date: 20240925
  Receipt Date: 20241004
  Transmission Date: 20250115
  Serious: No
  Sender: ALEMBIC
  Company Number: US-ALEMBIC PHARMACUETICALS LIMITED-2024SCAL001371

PATIENT

DRUGS (4)
  1. MODAFINIL [Suspect]
     Active Substance: MODAFINIL
     Indication: Somnolence
     Dosage: 100 MILLIGRAM, QD
     Route: 048
     Dates: start: 202409
  2. MODAFINIL [Suspect]
     Active Substance: MODAFINIL
     Indication: Cognitive disorder
     Dosage: HALF OF THE TABLET IN THE MORNING
     Route: 048
     Dates: start: 202409
  3. MODAFINIL [Suspect]
     Active Substance: MODAFINIL
     Indication: Fatigue
  4. MODAFINIL [Suspect]
     Active Substance: MODAFINIL
     Indication: Attention deficit hyperactivity disorder

REACTIONS (7)
  - Feeling abnormal [Not Recovered/Not Resolved]
  - Product substitution issue [Not Recovered/Not Resolved]
  - Drug ineffective [Not Recovered/Not Resolved]
  - Cognitive disorder [Not Recovered/Not Resolved]
  - Brain fog [Not Recovered/Not Resolved]
  - Frustration tolerance decreased [Not Recovered/Not Resolved]
  - Somnolence [Not Recovered/Not Resolved]
